FAERS Safety Report 7673850-6 (Version None)
Quarter: 2011Q3

REPORT INFORMATION
  Report Type: 
  Country: None (occurrence: None)
  Receive Date: 20110810
  Receipt Date: 20110804
  Transmission Date: 20111222
  Serious: Yes (Death)
  Sender: FDA-Public Use
  Company Number: JP-JNJFOC-20110611509

PATIENT
  Weight: 52 kg

DRUGS (8)
  1. VALPROATE SODIUM [Concomitant]
     Indication: SCHIZOPHRENIA
     Route: 048
     Dates: start: 20100626, end: 20110608
  2. RANTAC [Concomitant]
     Indication: GASTRIC ULCER
     Route: 048
     Dates: start: 20110409, end: 20110608
  3. INVEGA [Suspect]
     Route: 048
     Dates: start: 20110226, end: 20110305
  4. NITRAZEPAM [Concomitant]
     Indication: SCHIZOPHRENIA
     Route: 048
     Dates: end: 20110608
  5. DEPAS [Concomitant]
     Indication: SCHIZOPHRENIA
     Route: 048
     Dates: start: 20100219, end: 20110608
  6. INVEGA [Suspect]
     Route: 048
     Dates: start: 20110306, end: 20110312
  7. INVEGA [Suspect]
     Indication: SCHIZOPHRENIA
     Route: 048
     Dates: start: 20110313, end: 20110608
  8. NITRAZEPAM [Concomitant]
     Route: 048
     Dates: start: 20110423, end: 20110608

REACTIONS (1)
  - CARDIAC FAILURE ACUTE [None]
